FAERS Safety Report 11029858 (Version 3)
Quarter: 2015Q2

REPORT INFORMATION
  Report Type: Spontaneous
  Country: US (occurrence: US)
  Receive Date: 20150415
  Receipt Date: 20150630
  Transmission Date: 20150821
  Serious: No
  Sender: FDA-Public Use
  Company Number: US-BIOGENIDEC-2015BI025047

PATIENT
  Age: 54 Year
  Sex: Female

DRUGS (1)
  1. TYSABRI [Suspect]
     Active Substance: NATALIZUMAB
     Indication: MULTIPLE SCLEROSIS
     Route: 042
     Dates: start: 20060801, end: 20150129

REACTIONS (4)
  - Faecal incontinence [Unknown]
  - Knee operation [Unknown]
  - Urinary tract infection [Recovered/Resolved]
  - Ankle operation [Unknown]

NARRATIVE: CASE EVENT DATE: 20141101
